FAERS Safety Report 20877423 (Version 1)
Quarter: 2022Q2

REPORT INFORMATION
  Report Type: Report from Study
  Country: MX (occurrence: MX)
  Receive Date: 20220526
  Receipt Date: 20220526
  Transmission Date: 20220721
  Serious: Yes (Other)
  Sender: FDA-Public Use
  Company Number: MX-BAYER-2022A013132

PATIENT
  Sex: Female

DRUGS (1)
  1. EYLEA [Suspect]
     Active Substance: AFLIBERCEPT
     Indication: Neovascular age-related macular degeneration
     Dosage: UNK; SOLUTION FOR INJECTION
     Dates: start: 20170819

REACTIONS (4)
  - Choroidal effusion [Recovering/Resolving]
  - Vision blurred [Not Recovered/Not Resolved]
  - Visual impairment [Recovered/Resolved with Sequelae]
  - Inappropriate schedule of product administration [Not Recovered/Not Resolved]

NARRATIVE: CASE EVENT DATE: 20210301
